FAERS Safety Report 8166282-8 (Version None)
Quarter: 2012Q1

REPORT INFORMATION
  Report Type: 
  Country: None (occurrence: None)
  Receive Date: 20120227
  Receipt Date: 20110613
  Transmission Date: 20120608
  Serious: No
  Sender: FDA-Public Use
  Company Number: US-MYLANLABS-2011S1010752

PATIENT
  Age: 18 Year
  Sex: Female

DRUGS (3)
  1. AMNESTEEM [Suspect]
     Indication: ACNE CYSTIC
     Route: 048
     Dates: start: 20110303
  2. TRI-PREVIFEM [Concomitant]
  3. AMNESTEEM [Suspect]
     Route: 048
     Dates: end: 20110523

REACTIONS (4)
  - HAEMATOCHEZIA [None]
  - MIGRAINE [None]
  - URTICARIA [None]
  - RASH [None]
